FAERS Safety Report 9055795 (Version 1)
Quarter: 2013Q1

REPORT INFORMATION
  Report Type: Spontaneous
  Country: BR (occurrence: BR)
  Receive Date: 20130206
  Receipt Date: 20130206
  Transmission Date: 20140127
  Serious: Yes (Other)
  Sender: FDA-Public Use
  Company Number: BR-PFIZER INC-2013035822

PATIENT
  Age: 73 Year
  Sex: Female

DRUGS (6)
  1. DETRUSITOL LA [Suspect]
     Indication: HYPERTONIC BLADDER
     Dosage: 4 MG, 1X/DAY
     Route: 048
  2. SYNTHROID [Concomitant]
     Indication: HYPERTHYROIDISM
     Dosage: 75 MG, 1X/DAY
  3. GLIFAGE [Concomitant]
     Dosage: 750 MG, 2 TABLETS DAILY
  4. VALTRIAN [Concomitant]
     Dosage: 75 MG, DAILY
  5. CLORANA [Concomitant]
     Dosage: 25 MG, 1X/DAY
  6. PLANTABEN [Concomitant]

REACTIONS (3)
  - Presyncope [Not Recovered/Not Resolved]
  - Dry mouth [Not Recovered/Not Resolved]
  - Hyperhidrosis [Not Recovered/Not Resolved]
